FAERS Safety Report 4923198-5 (Version None)
Quarter: 2006Q1

REPORT INFORMATION
  Report Type: 
  Country: None (occurrence: None)
  Receive Date: 20060127
  Receipt Date: 20051226
  Transmission Date: 20060701
  Serious: Yes (Other)
  Sender: FDA-Public Use
  Company Number: 2006001044

PATIENT
  Age: 77 Year
  Sex: Male
  Weight: 115.6672 kg

DRUGS (8)
  1. LYRICA [Suspect]
     Indication: DIABETIC NEUROPATHY
     Dosage: 100 MG (50 MG, 2 IN 1 D), ORAL
     Route: 048
     Dates: start: 20050101
  2. METOPROLOL (METOPROLOL) [Concomitant]
  3. WARFARIN SODIUM [Concomitant]
  4. LSECOL (FLUVASTATIN) [Concomitant]
  5. IMIPRAMINE [Concomitant]
  6. TAMSULOSIN HCL [Concomitant]
  7. VITAMINS (VITAMINS) [Concomitant]
  8. HUMULIN 70/30 [Concomitant]

REACTIONS (1)
  - DRUG INEFFECTIVE [None]
